FAERS Safety Report 18487121 (Version 1)
Quarter: 2020Q4

REPORT INFORMATION
  Report Type: Spontaneous
  Country: US (occurrence: US)
  Receive Date: 20201110
  Receipt Date: 20201110
  Transmission Date: 20210114
  Serious: No
  Sender: FDA-Public Use
  Company Number: US-PERRIGO-20US000328

PATIENT

DRUGS (1)
  1. DOXYLAMINE SUCCINATE. [Suspect]
     Active Substance: DOXYLAMINE SUCCINATE
     Indication: INSOMNIA
     Dosage: 25 MG, NIGHTLY
     Route: 048
     Dates: start: 20200104, end: 20200105

REACTIONS (4)
  - Dizziness [Unknown]
  - Tremor [Unknown]
  - Drug ineffective [Unknown]
  - Nervousness [Unknown]

NARRATIVE: CASE EVENT DATE: 20200105
